FAERS Safety Report 9932938 (Version 1)
Quarter: 2014Q1

REPORT INFORMATION
  Report Type: Spontaneous
  Country: US (occurrence: US)
  Receive Date: 20140228
  Receipt Date: 20140228
  Transmission Date: 20141002
  Serious: No
  Sender: FDA-Public Use
  Company Number: US-GLAXOSMITHKLINE-A1040277A

PATIENT
  Age: 40 Year
  Sex: Male

DRUGS (3)
  1. LAMICTAL [Suspect]
     Indication: BIPOLAR DISORDER
     Dosage: 400MG PER DAY
     Route: 048
     Dates: start: 2005
  2. SOMA [Concomitant]
  3. TEMAZEPAM [Concomitant]

REACTIONS (3)
  - Overdose [Not Recovered/Not Resolved]
  - Balance disorder [Unknown]
  - Muscle spasms [Unknown]
